FAERS Safety Report 9876659 (Version 2)
Quarter: 2014Q1

REPORT INFORMATION
  Report Type: Other
  Country: US (occurrence: US)
  Receive Date: 20140206
  Receipt Date: 20140206
  Transmission Date: 20141002
  Serious: Yes (Hospitalization)
  Sender: FDA-Public Use
  Company Number: US-ACORDA-ACO_37478_2013

PATIENT
  Age: 55 Year
  Sex: Female
  Weight: 54.42 kg

DRUGS (10)
  1. AMPYRA [Suspect]
     Indication: GAIT DISTURBANCE
     Dosage: 10 MG, Q 12 HRS
     Route: 048
     Dates: start: 20130531, end: 20130628
  2. GILENYA [Concomitant]
     Indication: MULTIPLE SCLEROSIS
     Dosage: 0.5 MG, QD
     Route: 048
     Dates: start: 201210
  3. OXYBUTYNIN CHLORIDE [Concomitant]
     Indication: PRODUCT USED FOR UNKNOWN INDICATION
     Dosage: 5 MG, BID
     Route: 048
     Dates: end: 20130628
  4. BACLOFEN [Concomitant]
     Indication: MULTIPLE SCLEROSIS
     Dosage: 10 MG, TID
     Route: 048
  5. BACLOFEN [Concomitant]
     Dosage: 10 MG, QID
     Dates: start: 20130628
  6. AMBIEN CR [Concomitant]
     Indication: PRODUCT USED FOR UNKNOWN INDICATION
     Dosage: 10 MG, QD
     Route: 048
  7. NITROFURANTOIN [Concomitant]
     Indication: PRODUCT USED FOR UNKNOWN INDICATION
     Dosage: UNK, QD
     Route: 048
     Dates: end: 20130628
  8. VALIUM [Concomitant]
     Indication: MULTIPLE SCLEROSIS
     Dosage: 5 MG, BID
     Route: 048
  9. VALIUM [Concomitant]
     Indication: ANXIETY
     Dosage: 5 MG, Q 6 HOURS PRN
  10. AMOXICILLIN [Concomitant]
     Indication: PRODUCT USED FOR UNKNOWN INDICATION
     Dosage: UNK
     Dates: start: 20130711, end: 20130717

REACTIONS (19)
  - Multiple sclerosis relapse [Recovered/Resolved]
  - Urinary tract infection [Unknown]
  - Fall [Unknown]
  - Myalgia [Unknown]
  - Cough [Unknown]
  - Laboratory test abnormal [Recovered/Resolved]
  - White blood cell count decreased [Recovered/Resolved]
  - Blood thyroid stimulating hormone decreased [Unknown]
  - Blood urea abnormal [Unknown]
  - Blood creatinine abnormal [Recovered/Resolved]
  - Blood glucose abnormal [Unknown]
  - Alanine aminotransferase abnormal [Unknown]
  - Aspartate aminotransferase abnormal [Unknown]
  - Blood alkaline phosphatase abnormal [Unknown]
  - Haemoglobin decreased [Unknown]
  - Haematocrit decreased [Unknown]
  - Nausea [Unknown]
  - Headache [Unknown]
  - Drug dose omission [None]
